FAERS Safety Report 6798391-X (Version None)
Quarter: 2010Q2

REPORT INFORMATION
  Report Type: 
  Country: None (occurrence: None)
  Receive Date: 20100622
  Receipt Date: 20100607
  Transmission Date: 20101027
  Serious: Yes (Other)
  Sender: FDA-Public Use
  Company Number: 2010-00528

PATIENT
  Age: 66 Year
  Sex: Female
  Weight: 85.7298 kg

DRUGS (16)
  1. PRAVASTATIN [Suspect]
     Indication: HYPERLIPIDAEMIA
     Dosage: 80 MG (DAILY), PER ORAL
     Route: 048
  2. NEURONTIN 600 MG (UNKNOWN) [Concomitant]
  3. PRILOSEC 20 MG (UNKNOWN) [Concomitant]
  4. SPIREVA INHALER 18 MG [Concomitant]
  5. PULMICORT INHALER 180 MCG [Concomitant]
  6. REMERON 45 MG (UNKNOWN) [Concomitant]
  7. TRAZODONE TAB 200 MG [Concomitant]
  8. ENABLEX 15 MG (UNKNOWN) [Concomitant]
  9. DIGOXIN TAB 0.125 MG [Concomitant]
  10. CARDIA XL 120 MG (UNKNOWN) [Concomitant]
  11. ATENOLOL TAB 25 MG [Concomitant]
  12. ASPIRIN TAB [Concomitant]
  13. CELEXA [Concomitant]
  14. LASIX TAB 40 MG [Concomitant]
  15. LORAZEPAM [Concomitant]
  16. METFORMIN HCL [Concomitant]

REACTIONS (5)
  - ABASIA [None]
  - ARTHRALGIA [None]
  - FALL [None]
  - MYALGIA [None]
  - TENDON PAIN [None]
